FAERS Safety Report 8575367-3 (Version None)
Quarter: 2012Q3

REPORT INFORMATION
  Report Type: 
  Country: None (occurrence: None)
  Receive Date: 20120807
  Receipt Date: 20120803
  Transmission Date: 20120928
  Serious: No
  Sender: FDA-Public Use
  Company Number: US-PFIZER INC-2012189463

PATIENT
  Age: 65 Year
  Sex: Female
  Weight: 79.4 kg

DRUGS (5)
  1. PREMARIN [Suspect]
     Dosage: 0.625 MG, DAILY
  2. PREMARIN [Suspect]
     Indication: HORMONE REPLACEMENT THERAPY
     Dosage: 0.9 MG, 1X/DAY
  3. COUMADIN [Concomitant]
     Dosage: UNK
  4. SODIUM LACTATE [Concomitant]
     Indication: COW'S MILK INTOLERANCE
     Dosage: UNK
  5. PRILOSEC [Concomitant]
     Indication: DYSPEPSIA
     Dosage: UNK

REACTIONS (2)
  - NIGHT SWEATS [None]
  - INSOMNIA [None]
